FAERS Safety Report 20644076 (Version 1)
Quarter: 2022Q1

REPORT INFORMATION
  Report Type: Spontaneous
  Country: US (occurrence: US)
  Receive Date: 20220328
  Receipt Date: 20220328
  Transmission Date: 20220424
  Serious: No
  Sender: FDA-Public Use
  Company Number: US-PFIZER INC-2020195082

PATIENT
  Age: 40 Year
  Sex: Female

DRUGS (1)
  1. XELJANZ XR [Suspect]
     Active Substance: TOFACITINIB CITRATE
     Indication: Rheumatoid arthritis
     Dosage: 11 MG, 1X/DAY (ONCE DAILY)
     Route: 048
     Dates: start: 20200416

REACTIONS (8)
  - Condition aggravated [Not Recovered/Not Resolved]
  - Illness [Unknown]
  - Sinusitis [Unknown]
  - Hypertension [Unknown]
  - Peripheral swelling [Unknown]
  - Cardiac disorder [Unknown]
  - Pain [Recovering/Resolving]
  - Product dose omission issue [Unknown]
